FAERS Safety Report 5815097-1 (Version None)
Quarter: 2008Q3

REPORT INFORMATION
  Report Type: 
  Country: None (occurrence: None)
  Receive Date: 20080718
  Receipt Date: 20080710
  Transmission Date: 20090109
  Serious: Yes (Hospitalization, Other)
  Sender: FDA-Public Use
  Company Number: US-MERCK-0705USA05362

PATIENT
  Age: 58 Year
  Sex: Female
  Weight: 54 kg

DRUGS (2)
  1. FOSAMAX [Suspect]
     Indication: OSTEOPOROSIS
     Route: 048
     Dates: start: 20030101, end: 20060101
  2. SUDAFED 12 HOUR [Suspect]
     Route: 065

REACTIONS (31)
  - ADVERSE DRUG REACTION [None]
  - ANXIETY [None]
  - ARTHRITIS [None]
  - ATRIAL FIBRILLATION [None]
  - BLINDNESS TRANSIENT [None]
  - BLOOD DISORDER [None]
  - DEEP VEIN THROMBOSIS [None]
  - DENTAL CARIES [None]
  - DRUG INEFFECTIVE [None]
  - EXOSTOSIS [None]
  - GINGIVAL DISORDER [None]
  - GINGIVAL INFECTION [None]
  - HAEMATOMA [None]
  - HEART RATE IRREGULAR [None]
  - HERPES VIRUS INFECTION [None]
  - HYPERSENSITIVITY [None]
  - HYPOAESTHESIA [None]
  - IMPAIRED HEALING [None]
  - JAW DISORDER [None]
  - JOINT INJURY [None]
  - JOINT RANGE OF MOTION DECREASED [None]
  - LIP AND/OR ORAL CAVITY CANCER [None]
  - NASAL CONGESTION [None]
  - ORAL INFECTION [None]
  - OSTEONECROSIS [None]
  - OTITIS MEDIA [None]
  - PERIODONTAL DISEASE [None]
  - SUPRAVENTRICULAR TACHYCARDIA [None]
  - TEMPOROMANDIBULAR JOINT SYNDROME [None]
  - TOOTH FRACTURE [None]
  - TRISMUS [None]
